FAERS Safety Report 9708578 (Version 1)
Quarter: 2013Q4

REPORT INFORMATION
  Report Type: Spontaneous
  Country: US (occurrence: None)
  Receive Date: 20131121
  Receipt Date: 20131121
  Transmission Date: 20140711
  Serious: Yes (Other)
  Sender: FDA-Public Use
  Company Number: 2013P1021120

PATIENT
  Age: 67 Year
  Sex: Female

DRUGS (3)
  1. VANCOMYCIN [Suspect]
     Indication: CELLULITIS
     Dosage: ;IV
     Route: 042
  2. CLINDAMYCIN [Suspect]
     Indication: CELLULITIS
     Dosage: ;IV
     Route: 042
  3. CEFEPIME [Suspect]
     Indication: CELLULITIS

REACTIONS (3)
  - Acute generalised exanthematous pustulosis [None]
  - Hypotension [None]
  - Renal failure acute [None]
